FAERS Safety Report 10341900 (Version 3)
Quarter: 2014Q4

REPORT INFORMATION
  Report Type: Report from Study
  Country: PT (occurrence: PT)
  Receive Date: 20140725
  Receipt Date: 20141022
  Transmission Date: 20150528
  Serious: Yes (Other)
  Sender: FDA-Public Use
  Company Number: PT-ASTELLAS-2014US008774

PATIENT
  Age: 71 Year
  Sex: Male

DRUGS (1)
  1. ERLOTINIB [Suspect]
     Active Substance: ERLOTINIB
     Indication: LUNG ADENOCARCINOMA
     Route: 048
     Dates: start: 20101207

REACTIONS (8)
  - Entropion [Unknown]
  - Diarrhoea [Unknown]
  - Eye disorder [Recovered/Resolved]
  - Pulmonary embolism [Recovered/Resolved]
  - Rash [Recovering/Resolving]
  - Blepharitis [Not Recovered/Not Resolved]
  - Dry eye [Unknown]
  - Rhinorrhoea [Unknown]

NARRATIVE: CASE EVENT DATE: 201102
